FAERS Safety Report 6517611-X (Version None)
Quarter: 2009Q4

REPORT INFORMATION
  Report Type: 
  Country: None (occurrence: None)
  Receive Date: 20091224
  Receipt Date: 20091214
  Transmission Date: 20100525
  Serious: Yes (Hospitalization, Other)
  Sender: FDA-Public Use
  Company Number: PHHY2009NL55295

PATIENT
  Age: 60 Year
  Sex: Female

DRUGS (3)
  1. MYCOPHENOLATE MOFETIL [Suspect]
     Indication: RENAL TRANSPLANT
  2. TACROLIMUS [Suspect]
     Indication: RENAL TRANSPLANT
  3. PREDNISOLONE [Suspect]
     Indication: RENAL TRANSPLANT

REACTIONS (17)
  - ABDOMINAL DISTENSION [None]
  - ABSCESS [None]
  - ABSCESS DRAINAGE [None]
  - ANURIA [None]
  - COMPLICATIONS OF TRANSPLANT SURGERY [None]
  - DIABETES MELLITUS [None]
  - DISORIENTATION [None]
  - EMPHYSEMATOUS PYELONEPHRITIS [None]
  - ESCHERICHIA INFECTION [None]
  - GASTROINTESTINAL SOUNDS ABNORMAL [None]
  - HAEMODYNAMIC INSTABILITY [None]
  - HYPOTENSION [None]
  - ILEUS [None]
  - MALAISE [None]
  - NEPHRECTOMY [None]
  - PYREXIA [None]
  - URINARY RETENTION [None]
